FAERS Safety Report 18445908 (Version 2)
Quarter: 2020Q4

REPORT INFORMATION
  Report Type: Spontaneous
  Country: US (occurrence: US)
  Receive Date: 20201030
  Receipt Date: 20201112
  Transmission Date: 20210114
  Serious: Yes (Life-Threatening, Hospitalization)
  Sender: FDA-Public Use
  Company Number: US-TEVA-2020-US-1842148

PATIENT
  Age: 74 Year
  Sex: Male

DRUGS (13)
  1. LEVETIRACETAM. [Suspect]
     Active Substance: LEVETIRACETAM
     Dosage: 2 GRAM DAILY;
     Route: 065
  2. FOSPHENYTOIN [Suspect]
     Active Substance: FOSPHENYTOIN
     Indication: STATUS EPILEPTICUS
     Route: 065
  3. FOSPHENYTOIN [Suspect]
     Active Substance: FOSPHENYTOIN
     Indication: STATUS EPILEPTICUS
     Dosage: 300 MILLIGRAM DAILY; RECEIVED THRICE DAILY
     Route: 065
  4. KETAMINE [Suspect]
     Active Substance: KETAMINE
     Indication: STATUS EPILEPTICUS
     Dosage: 0.5 MG/KG AS LOADING DOSE
     Route: 041
  5. LEVETIRACETAM. [Suspect]
     Active Substance: LEVETIRACETAM
     Indication: STATUS EPILEPTICUS
     Dosage: AS LOADING DOSE
     Route: 065
  6. LORAZEPAM. [Suspect]
     Active Substance: LORAZEPAM
     Indication: STATUS EPILEPTICUS
     Route: 042
  7. KETAMINE [Suspect]
     Active Substance: KETAMINE
     Route: 041
  8. LACOSAMIDE. [Suspect]
     Active Substance: LACOSAMIDE
     Indication: STATUS EPILEPTICUS
     Dosage: AS LOADING DOSE
     Route: 065
  9. KETAMINE [Suspect]
     Active Substance: KETAMINE
     Route: 041
  10. MIDAZOLAM. [Suspect]
     Active Substance: MIDAZOLAM
     Route: 050
  11. LACOSAMIDE. [Suspect]
     Active Substance: LACOSAMIDE
     Dosage: 200 MILLIGRAM DAILY;
     Route: 065
  12. MIDAZOLAM. [Suspect]
     Active Substance: MIDAZOLAM
     Indication: STATUS EPILEPTICUS
     Route: 050
  13. KETAMINE [Suspect]
     Active Substance: KETAMINE
     Route: 041

REACTIONS (2)
  - Drug ineffective [Unknown]
  - Abdominal compartment syndrome [Recovered/Resolved]
